FAERS Safety Report 20746384 (Version 1)
Quarter: 2022Q2

REPORT INFORMATION
  Report Type: Spontaneous
  Country: US (occurrence: None)
  Receive Date: 20220425
  Receipt Date: 20220425
  Transmission Date: 20220720
  Serious: Yes (Disabling)
  Sender: FDA-Public Use
  Company Number: None

PATIENT
  Age: 66 Year
  Sex: Female
  Weight: 55.35 kg

DRUGS (1)
  1. LEVOFLOXACIN [Suspect]
     Active Substance: LEVOFLOXACIN
     Indication: Colitis
     Dosage: OTHER QUANTITY : 1 TABLET(S);?FREQUENCY : DAILY;?
     Route: 048
     Dates: start: 20220223, end: 20220302

REACTIONS (6)
  - Neurological symptom [None]
  - Dizziness [None]
  - Tinnitus [None]
  - Paraesthesia oral [None]
  - Hypoaesthesia oral [None]
  - Paraesthesia [None]

NARRATIVE: CASE EVENT DATE: 20220327
